FAERS Safety Report 15674096 (Version 1)
Quarter: 2018Q4

REPORT INFORMATION
  Report Type: Spontaneous
  Country: US (occurrence: US)
  Receive Date: 20181129
  Receipt Date: 20181129
  Transmission Date: 20190205
  Serious: Yes (Death, Other)
  Sender: FDA-Public Use
  Company Number: US-B.I. PHARMACEUTICALS,INC./RIDGEFIELD-2018-BI-057454

PATIENT
  Age: 84 Year
  Sex: Female

DRUGS (1)
  1. SPIRIVA [Suspect]
     Active Substance: TIOTROPIUM BROMIDE MONOHYDRATE
     Indication: CHRONIC OBSTRUCTIVE PULMONARY DISEASE
     Dosage: ONE PUFF BID; STRENGTH: 18 MCG; FORM: CAP  ADMINISTRATION-NR  ACTION(S) TAKEN: NOT APPLICABLE
     Route: 055
     Dates: start: 201806

REACTIONS (3)
  - Neoplasm malignant [Unknown]
  - Pulmonary mass [Unknown]
  - Death [Fatal]

NARRATIVE: CASE EVENT DATE: 2018
